FAERS Safety Report 18349891 (Version 1)
Quarter: 2020Q4

REPORT INFORMATION
  Report Type: Spontaneous
  Country: US (occurrence: US)
  Receive Date: 20201006
  Receipt Date: 20201006
  Transmission Date: 20210114
  Serious: Yes (Hospitalization)
  Sender: FDA-Public Use
  Company Number: None

PATIENT
  Age: 75 Year
  Sex: Female
  Weight: 67.95 kg

DRUGS (12)
  1. LIDOCAINE PATCHES [Concomitant]
     Active Substance: LIDOCAINE
  2. VICODIN [Concomitant]
     Active Substance: ACETAMINOPHEN\HYDROCODONE BITARTRATE
  3. ALBUTEROL. [Concomitant]
     Active Substance: ALBUTEROL
  4. MAGNESIUM CITRATE. [Concomitant]
     Active Substance: MAGNESIUM CITRATE
  5. OMEPRAZOLE 40 MG CPDR [Suspect]
     Active Substance: OMEPRAZOLE
  6. POTASSIUM CITRATE. [Concomitant]
     Active Substance: POTASSIUM CITRATE
  7. MULTI VITAMIN [Concomitant]
     Active Substance: VITAMINS
  8. OMEPRAZOLE 20 MG CPDR [Suspect]
     Active Substance: OMEPRAZOLE
     Indication: GASTROINTESTINAL ULCER
     Dosage: ?          QUANTITY:1 CAPSULE(S);?
     Route: 048
     Dates: start: 20200903, end: 20200921
  9. CYCLOBENZAPRINE. [Concomitant]
     Active Substance: CYCLOBENZAPRINE
  10. TOPROL XL [Concomitant]
     Active Substance: METOPROLOL SUCCINATE
  11. NASACORT [Concomitant]
     Active Substance: TRIAMCINOLONE ACETONIDE
  12. SUDAFED [Concomitant]
     Active Substance: PSEUDOEPHEDRINE HYDROCHLORIDE

REACTIONS (6)
  - Heart rate increased [None]
  - Haemoglobin decreased [None]
  - Palpitations [None]
  - Joint swelling [None]
  - Tetany [None]
  - Peripheral swelling [None]

NARRATIVE: CASE EVENT DATE: 20200915
